FAERS Safety Report 19495429 (Version 1)
Quarter: 2021Q3

REPORT INFORMATION
  Report Type: Report from Study
  Country: DE (occurrence: DE)
  Receive Date: 20210706
  Receipt Date: 20210706
  Transmission Date: 20211014
  Serious: Yes (Hospitalization)
  Sender: FDA-Public Use
  Company Number: DE-AMGEN-DEUSL2021101532

PATIENT
  Age: 16 Year
  Sex: Male

DRUGS (2)
  1. COVID?19 VACCINE [Concomitant]
     Dosage: UNK
  2. AMGEVITA [Suspect]
     Active Substance: ADALIMUMAB
     Indication: CROHN^S DISEASE
     Dosage: 40 MILLIGRAM, Q2WK
     Route: 065

REACTIONS (3)
  - Blood count abnormal [Unknown]
  - Vomiting [Unknown]
  - Infection [Unknown]
